FAERS Safety Report 8988887 (Version 1)
Quarter: 2012Q4

REPORT INFORMATION
  Report Type: 
  Country: DE (occurrence: DE)
  Receive Date: 20121227
  Receipt Date: 20121227
  Transmission Date: 20130627
  Serious: Yes (Hospitalization, Other)
  Sender: FDA-Public Use
  Company Number: DE-B.I. PHARMACEUTICALS,INC./RIDGEFIELD-2012-DE-02775DE

PATIENT
  Age: 84 Year
  Sex: Female

DRUGS (5)
  1. PRADAXA [Suspect]
     Indication: ATRIAL FIBRILLATION
     Dosage: 220 mg
     Dates: start: 201207
  2. PRADAXA [Suspect]
     Dosage: 150 mg
  3. FOSINOPRIL [Concomitant]
     Dosage: strength: 20/12.5
  4. FURORESE [Concomitant]
     Dosage: strength: 20/50
  5. METO-SUCCINAT [Concomitant]
     Dosage: 47.5 NR

REACTIONS (5)
  - Thrombocytopenia [Not Recovered/Not Resolved]
  - Syncope [Recovered/Resolved]
  - Loss of consciousness [Recovered/Resolved]
  - Fall [Recovered/Resolved]
  - Vomiting [Recovered/Resolved]
